FAERS Safety Report 8276019-X (Version None)
Quarter: 2012Q2

REPORT INFORMATION
  Report Type: 
  Country: None (occurrence: None)
  Receive Date: 20120406
  Receipt Date: 20120402
  Transmission Date: 20120825
  Serious: Yes (Disabling, Other)
  Sender: FDA-Public Use
  Company Number: ACO_29597_2012

PATIENT
  Age: 50 Year
  Sex: Male
  Weight: 65.8 kg

DRUGS (2)
  1. AMPYRA [Suspect]
     Dosage: 10 MG, BID, ORAL
     Route: 048
     Dates: end: 20111201
  2. REBIF [Concomitant]

REACTIONS (2)
  - DIPLEGIA [None]
  - MULTIPLE SCLEROSIS RELAPSE [None]
